FAERS Safety Report 15777282 (Version 1)
Quarter: 2018Q4

REPORT INFORMATION
  Report Type: Spontaneous
  Country: US (occurrence: US)
  Receive Date: 20181230
  Receipt Date: 20181230
  Transmission Date: 20190205
  Serious: Yes (Disabling)
  Sender: FDA-Public Use
  Company Number: None

PATIENT
  Age: 45 Year
  Sex: Male
  Weight: 74.25 kg

DRUGS (1)
  1. CIPROFLOXACIN. [Suspect]
     Active Substance: CIPROFLOXACIN
     Indication: PROSTATE INFECTION
     Dosage: ?          QUANTITY:1 CAPSULE(S);?
     Route: 048
     Dates: start: 20171002, end: 20171130

REACTIONS (7)
  - Pain in extremity [None]
  - Loss of personal independence in daily activities [None]
  - Myalgia [None]
  - Muscle rupture [None]
  - Tendon injury [None]
  - Back pain [None]
  - Toxicity to various agents [None]

NARRATIVE: CASE EVENT DATE: 20171201
